FAERS Safety Report 8523656-0 (Version None)
Quarter: 2012Q3

REPORT INFORMATION
  Report Type: 
  Country: None (occurrence: None)
  Receive Date: 20120709
  Receipt Date: 20120626
  Transmission Date: 20120928
  Serious: Yes (Hospitalization)
  Sender: FDA-Public Use
  Company Number: 2012AP001033

PATIENT
  Age: 63 Year
  Sex: Male

DRUGS (5)
  1. OMEPRAZOLE [Suspect]
     Indication: DUODENITIS
     Dosage: 20 MG;BID
  2. SIMVASTATIN [Concomitant]
  3. LANSOPRAZOLE [Suspect]
     Indication: DUODENITIS
     Dosage: 30 MG; 15 MG,
  4. LANSOPRAZOLE [Suspect]
     Indication: BARRETT'S OESOPHAGUS
     Dosage: 30 MG; 15 MG,
  5. AMLODIPINE [Concomitant]

REACTIONS (21)
  - CONVULSION [None]
  - PO2 DECREASED [None]
  - BLOOD LACTIC ACID INCREASED [None]
  - PCO2 INCREASED [None]
  - THERAPY CESSATION [None]
  - NEUTROPHIL COUNT INCREASED [None]
  - BLOOD CALCIUM DECREASED [None]
  - VOMITING [None]
  - DIARRHOEA [None]
  - BLOOD GLUCOSE INCREASED [None]
  - BARRETT'S OESOPHAGUS [None]
  - ACHLORHYDRIA [None]
  - DEHYDRATION [None]
  - BLOOD POTASSIUM DECREASED [None]
  - MELAENA [None]
  - LETHARGY [None]
  - MYOCLONUS [None]
  - ACUTE PRERENAL FAILURE [None]
  - COMA SCALE ABNORMAL [None]
  - HYPOMAGNESAEMIA [None]
  - DISEASE RECURRENCE [None]
